FAERS Safety Report 4352293-7 (Version None)
Quarter: 2004Q2

REPORT INFORMATION
  Report Type: 
  Country: None (occurrence: None)
  Receive Date: 20040430
  Receipt Date: 20040225
  Transmission Date: 20050107
  Serious: No
  Sender: FDA-Public Use
  Company Number: 23168(0)

PATIENT
  Age: 42 Year
  Sex: Female

DRUGS (3)
  1. ALDARA [Suspect]
     Indication: CONDYLOMA ACUMINATUM
     Dosage: (1 SACHET, 3 IN 1 WEEK(S)), TOPICAL
     Route: 061
     Dates: start: 20040101, end: 20040130
  2. PROZAC [Concomitant]
  3. NEURONTIN [Concomitant]

REACTIONS (1)
  - NEOPLASM SKIN [None]
